FAERS Safety Report 10457063 (Version 2)
Quarter: 2014Q4

REPORT INFORMATION
  Report Type: Spontaneous
  Country: NL (occurrence: None)
  Receive Date: 20140912
  Receipt Date: 20141023
  Transmission Date: 20150528
  Serious: Yes (Life-Threatening, Hospitalization, Other)
  Sender: FDA-Public Use
  Company Number: 2536422

PATIENT
  Age: 53 Year
  Sex: Male

DRUGS (3)
  1. IDARUBICIN [Suspect]
     Active Substance: IDARUBICIN
     Indication: ACUTE MYELOID LEUKAEMIA
     Dosage: (NOT OTHERWISE SPECIFIED)??09:00 HOURS
     Route: 042
     Dates: start: 20130629, end: 20130629
  2. CLOFARABINE [Suspect]
     Active Substance: CLOFARABINE
     Indication: ACUTE MYELOID LEUKAEMIA
     Dosage: 09:00 HOURS?(NOT OTHERWISE SPECIFIED)
     Route: 042
     Dates: start: 20130629, end: 20130629
  3. CYTARABINE. [Suspect]
     Active Substance: CYTARABINE
     Indication: ACUTE MYELOID LEUKAEMIA
     Dosage: (NOT OTHERWISE SPECIFIED)
     Route: 042
     Dates: start: 20130629, end: 20130629

REACTIONS (6)
  - Blood pressure decreased [None]
  - Systemic inflammatory response syndrome [None]
  - Acute myeloid leukaemia [None]
  - Disease progression [None]
  - Blast cell count decreased [None]
  - Cerebral haemorrhage [None]

NARRATIVE: CASE EVENT DATE: 20130629
